FAERS Safety Report 10455860 (Version 3)
Quarter: 2015Q4

REPORT INFORMATION
  Report Type: Spontaneous
  Country: US (occurrence: None)
  Receive Date: 20140911
  Receipt Date: 20151105
  Transmission Date: 20160304
  Serious: Yes (Other)
  Sender: FDA-Public Use
  Company Number: ADR-2014-00723

PATIENT
  Age: 42 Year
  Sex: Female

DRUGS (2)
  1. BACLOFEN INTRATHECAL 100 MCG/ML [Suspect]
     Active Substance: BACLOFEN
     Indication: PAIN
  2. MORPHINE (INTRATHECAL) 25 MG/ML [Suspect]
     Active Substance: MORPHINE
     Indication: PAIN

REACTIONS (12)
  - Implant site dehiscence [None]
  - Post lumbar puncture syndrome [None]
  - Therapeutic response unexpected [None]
  - Tooth erosion [None]
  - Device malfunction [None]
  - Weight increased [None]
  - Medical device complication [None]
  - Tooth loss [None]
  - Peripheral swelling [None]
  - Swelling [None]
  - Cerebrospinal fluid leakage [None]
  - Device expulsion [None]
